FAERS Safety Report 7330689-9 (Version None)
Quarter: 2011Q1

REPORT INFORMATION
  Report Type: 
  Country: None (occurrence: None)
  Receive Date: 20110304
  Receipt Date: 20100923
  Transmission Date: 20110831
  Serious: Yes (Hospitalization, Other)
  Sender: FDA-Public Use
  Company Number: US-BAYER-200935877NA

PATIENT
  Sex: Female
  Weight: 60 kg

DRUGS (5)
  1. YAZ [Suspect]
     Indication: PREMENSTRUAL SYNDROME
     Route: 048
     Dates: start: 20040301, end: 20080101
  2. YASMIN [Suspect]
     Indication: PREMENSTRUAL SYNDROME
     Route: 048
     Dates: start: 20040301, end: 20080101
  3. AUGMENTIN '125' [Concomitant]
  4. ALEVE [Concomitant]
  5. ADVIL LIQUI-GELS [Concomitant]

REACTIONS (9)
  - DYSGRAPHIA [None]
  - HYPERTENSION [None]
  - APHASIA [None]
  - DYSLEXIA [None]
  - MIGRAINE WITH AURA [None]
  - CEREBROVASCULAR ACCIDENT [None]
  - FUMBLING [None]
  - MUSCULAR WEAKNESS [None]
  - VIITH NERVE PARALYSIS [None]
